FAERS Safety Report 8890335 (Version 1)
Quarter: 2012Q4

REPORT INFORMATION
  Report Type: 
  Country: MX (occurrence: MX)
  Receive Date: 20121107
  Receipt Date: 20121107
  Transmission Date: 20130627
  Serious: Yes (Other)
  Sender: FDA-Public Use
  Company Number: PHHY2012MX101512

PATIENT
  Sex: Female

DRUGS (3)
  1. STALEVO [Suspect]
     Indication: PARKINSON^S DISEASE
     Dosage: 1 tablet (200/150/37.5 mg) per day
     Dates: start: 201001
  2. MICARDIS [Concomitant]
     Dosage: 1 DF, daily
  3. NORVAS [Concomitant]
     Dosage: 1 DF, daily

REACTIONS (4)
  - Humerus fracture [Not Recovered/Not Resolved]
  - Joint dislocation [Not Recovered/Not Resolved]
  - Fall [Not Recovered/Not Resolved]
  - Nausea [Not Recovered/Not Resolved]
